FAERS Safety Report 11400975 (Version 1)
Quarter: 2015Q3

REPORT INFORMATION
  Report Type: Spontaneous
  Country: US (occurrence: US)
  Receive Date: 20150820
  Receipt Date: 20150820
  Transmission Date: 20151125
  Serious: Yes (Death, Other)
  Sender: FDA-Public Use
  Company Number: PHHY2015US097702

PATIENT
  Age: 75 Year
  Sex: Male

DRUGS (4)
  1. LEUCOVORIN. [Suspect]
     Active Substance: LEUCOVORIN
     Indication: GASTRIC CANCER
     Dosage: 400 MG/M2, UNK (ON DAY 1)
     Route: 042
  2. 5-FLUOROURACIL [Suspect]
     Active Substance: FLUOROURACIL
     Indication: GASTRIC CANCER
     Dosage: 400 MG/M2, UNK (ON DAY 1)
     Route: 042
  3. 5-FLUOROURACIL [Suspect]
     Active Substance: FLUOROURACIL
     Dosage: 800 MG/M2, UNK (CONTINUOUS INFUSION OVER 24H ON DAYS 1 AND 2)
     Route: 041
  4. OXALIPLATIN. [Suspect]
     Active Substance: OXALIPLATIN
     Indication: GASTRIC CANCER
     Dosage: 85 MG/M2, UNK (ON DAY 1)
     Route: 042

REACTIONS (7)
  - Cardiac arrest [Fatal]
  - Abdominal pain [Unknown]
  - Decreased appetite [Unknown]
  - Localised intraabdominal fluid collection [Unknown]
  - Gastrointestinal perforation [Unknown]
  - Pneumoperitoneum [Unknown]
  - Diarrhoea [Unknown]
